FAERS Safety Report 23089171 (Version 2)
Quarter: 2023Q4

REPORT INFORMATION
  Report Type: Report from Study
  Country: CA (occurrence: None)
  Receive Date: 20231020
  Receipt Date: 20231103
  Transmission Date: 20240110
  Serious: Yes (Other)
  Sender: FDA-Public Use
  Company Number: 2023A171142

PATIENT
  Sex: Female

DRUGS (7)
  1. FASENRA [Suspect]
     Active Substance: BENRALIZUMAB
     Indication: Asthma
     Route: 058
     Dates: start: 20200610, end: 20230321
  2. FASENRA [Suspect]
     Active Substance: BENRALIZUMAB
     Indication: Asthma
     Route: 058
     Dates: start: 20230321, end: 20230321
  3. SYMBICORT [Suspect]
     Active Substance: BUDESONIDE\FORMOTEROL FUMARATE DIHYDRATE
     Indication: Asthma
     Dosage: UNK
     Route: 055
  4. TEZSPIRE [Suspect]
     Active Substance: TEZEPELUMAB-EKKO
     Indication: Asthma
     Route: 058
     Dates: start: 20230803
  5. TEZSPIRE [Suspect]
     Active Substance: TEZEPELUMAB-EKKO
     Indication: Asthma
     Route: 058
     Dates: start: 20230831
  6. SPIRIVA RESPIMAT [Concomitant]
     Active Substance: TIOTROPIUM BROMIDE
     Dosage: 2.5MCG
  7. SYMBICORT [Concomitant]
     Active Substance: BUDESONIDE\FORMOTEROL FUMARATE DIHYDRATE
     Dosage: 200MCG 2 PUFFS QID

REACTIONS (15)
  - Spinal compression fracture [Recovering/Resolving]
  - Lower respiratory tract infection [Unknown]
  - Heart rate increased [Unknown]
  - Emotional disorder [Unknown]
  - Peripheral swelling [Unknown]
  - Crying [Unknown]
  - Decreased activity [Unknown]
  - Skin laceration [Unknown]
  - Fall [Recovering/Resolving]
  - Limb injury [Recovering/Resolving]
  - Respiratory rate increased [Unknown]
  - Pain [Unknown]
  - Lung disorder [Unknown]
  - Drug ineffective [Unknown]
  - Anxiety [Unknown]
